FAERS Safety Report 25403999 (Version 2)
Quarter: 2025Q2

REPORT INFORMATION
  Report Type: Report from Study
  Country: US (occurrence: US)
  Receive Date: 20250606
  Receipt Date: 20250612
  Transmission Date: 20250716
  Serious: Yes (Death, Hospitalization, Other)
  Sender: BOEHRINGER INGELHEIM
  Company Number: US-BoehringerIngelheim-2025-BI-073374

PATIENT
  Sex: Male
  Weight: 55 kg

DRUGS (2)
  1. JARDIANCE [Suspect]
     Active Substance: EMPAGLIFLOZIN
     Indication: Cardiac failure congestive
     Dates: start: 2022, end: 20241226
  2. ENTRESTO [Concomitant]
     Active Substance: SACUBITRIL\VALSARTAN
     Indication: Product used for unknown indication

REACTIONS (5)
  - Cardiac failure congestive [Fatal]
  - Euglycaemic diabetic ketoacidosis [Recovering/Resolving]
  - Cardiogenic shock [Not Recovered/Not Resolved]
  - Aortic stenosis [Unknown]
  - Condition aggravated [Unknown]
